FAERS Safety Report 5722955-5 (Version None)
Quarter: 2008Q2

REPORT INFORMATION
  Report Type: 
  Country: None (occurrence: None)
  Receive Date: 20080428
  Receipt Date: 20080428
  Transmission Date: 20081010
  Serious: No
  Sender: FDA-Public Use
  Company Number: None

PATIENT
  Age: 53 Year
  Sex: Female
  Weight: 59.8748 kg

DRUGS (2)
  1. ZICAM COLD REMEDY NASAL GEL ZINCUM GLUCONICUM 2X ZICAM LLC PHOENIX MAT [Suspect]
     Indication: NASAL CONGESTION
     Dosage: NOT ON SPRAY BOTTLE NASAL
     Route: 045
     Dates: start: 20080423, end: 20080423
  2. ZICAM COLD REMEDY NASAL GEL ZINCUM GLUCONICUM 2X ZICAM LLC PHOENIX MAT [Suspect]
     Indication: NASOPHARYNGITIS
     Dosage: NOT ON SPRAY BOTTLE NASAL
     Route: 045
     Dates: start: 20080423, end: 20080423

REACTIONS (3)
  - AGEUSIA [None]
  - ANOSMIA [None]
  - NASAL DISCOMFORT [None]
